FAERS Safety Report 7838188 (Version 3)
Quarter: 2013Q1

REPORT INFORMATION
  Report Type: Spontaneous
  Country: US (occurrence: US)
  Receive Date: 20110303
  Receipt Date: 20130312
  Transmission Date: 20140127
  Serious: No
  Sender: FDA-Public Use
  Company Number: US-BIOGENIDEC-2011BI006842

PATIENT
  Sex: Female

DRUGS (1)
  1. TYSABRI [Suspect]
     Indication: MULTIPLE SCLEROSIS
     Route: 042
     Dates: start: 20090909, end: 20120314

REACTIONS (8)
  - Cognitive disorder [Not Recovered/Not Resolved]
  - Balance disorder [Not Recovered/Not Resolved]
  - Fractured coccyx [Recovered/Resolved]
  - Fall [Recovered/Resolved]
  - Injection site vesicles [Recovered/Resolved]
  - Nasopharyngitis [Recovered/Resolved]
  - Dizziness [Not Recovered/Not Resolved]
  - Urinary tract infection [Recovered/Resolved]
